FAERS Safety Report 8521585-X (Version None)
Quarter: 2012Q3

REPORT INFORMATION
  Report Type: 
  Country: None (occurrence: None)
  Receive Date: 20120719
  Receipt Date: 20120713
  Transmission Date: 20120928
  Serious: Yes (Hospitalization, Other)
  Sender: FDA-Public Use
  Company Number: PHHY2012BR020385

PATIENT
  Sex: Female
  Weight: 52 kg

DRUGS (5)
  1. TRILEPTAL [Suspect]
     Dosage: 600 MG, BID
     Route: 048
  2. LOSARTAN POTASSIUM [Concomitant]
     Indication: HYPERTENSION
     Dosage: 2 DF, DAILY
     Route: 048
  3. TRILEPTAL [Suspect]
     Dosage: 300 MG, DAILY
     Dates: start: 20120306
  4. TRILEPTAL [Suspect]
     Indication: MULTIPLE SCLEROSIS
     Dosage: 300 MG, DAILY
     Route: 048
  5. BROMAZEPAM [Concomitant]
     Indication: SLEEP DISORDER
     Dosage: 1 DF, AT NIGHT
     Route: 048

REACTIONS (7)
  - MEMORY IMPAIRMENT [None]
  - FALL [None]
  - HAEMATOMA [None]
  - GAIT DISTURBANCE [None]
  - SYNCOPE [None]
  - EYE DISORDER [None]
  - HYPERTENSION [None]
